FAERS Safety Report 10426963 (Version 2)
Quarter: 2014Q3

REPORT INFORMATION
  Report Type: Spontaneous
  Country: DE (occurrence: DE)
  Receive Date: 20140903
  Receipt Date: 20140904
  Transmission Date: 20150326
  Serious: Yes (Life-Threatening, Hospitalization)
  Sender: FDA-Public Use
  Company Number: DE-PFIZER INC-2014241856

PATIENT
  Age: 47 Year
  Sex: Male
  Weight: 97 kg

DRUGS (3)
  1. CHAMPIX [Suspect]
     Active Substance: VARENICLINE TARTRATE
     Indication: SMOKING CESSATION THERAPY
     Dosage: 1 MG, UNK
     Route: 048
  2. TRAZODONE [Concomitant]
     Active Substance: TRAZODONE HYDROCHLORIDE
     Indication: SLEEP DISORDER
     Dosage: 100 MG, UNK
  3. QUENTIAX [Concomitant]
     Active Substance: QUETIAPINE FUMARATE
     Indication: SLEEP DISORDER
     Dosage: 25 MG, UNK

REACTIONS (4)
  - Enterocolitis haemorrhagic [Recovering/Resolving]
  - Petechiae [Recovering/Resolving]
  - Diarrhoea haemorrhagic [Recovering/Resolving]
  - Thrombocytopenia [Recovering/Resolving]

NARRATIVE: CASE EVENT DATE: 20140704
